FAERS Safety Report 11095597 (Version 7)
Quarter: 2016Q3

REPORT INFORMATION
  Report Type: Report from Study
  Country: BR (occurrence: BR)
  Receive Date: 20150506
  Receipt Date: 20160824
  Transmission Date: 20161109
  Serious: Yes (Other)
  Sender: FDA-Public Use
  Company Number: PHHY2015BR053980

PATIENT
  Sex: Male
  Weight: 84 kg

DRUGS (3)
  1. SANDOSTATIN LAR DEPOT [Suspect]
     Active Substance: OCTREOTIDE ACETATE
     Dosage: 30 MG, QMO
     Route: 030
     Dates: start: 201504
  2. SANDOSTATIN LAR DEPOT [Suspect]
     Active Substance: OCTREOTIDE ACETATE
     Indication: ACROMEGALY
     Dosage: 30 MG, QMO
     Route: 030
     Dates: start: 2012, end: 2015
  3. SIMVASTATIN. [Concomitant]
     Active Substance: SIMVASTATIN
     Indication: HEAD DISCOMFORT
     Dosage: 5 DF OF 30 MG, QD
     Route: 048
     Dates: start: 201504

REACTIONS (13)
  - Hypoacusis [Not Recovered/Not Resolved]
  - Hyperthyroidism [Unknown]
  - Eye pain [Not Recovered/Not Resolved]
  - Ear discomfort [Unknown]
  - Influenza [Recovering/Resolving]
  - Blindness transient [Not Recovered/Not Resolved]
  - Hypertension [Unknown]
  - Confusional state [Unknown]
  - Diabetes mellitus [Unknown]
  - Asthenia [Recovering/Resolving]
  - Eye colour change [Not Recovered/Not Resolved]
  - Headache [Recovering/Resolving]
  - Weight decreased [Recovering/Resolving]

NARRATIVE: CASE EVENT DATE: 2012
